FAERS Safety Report 15689062 (Version 1)
Quarter: 2018Q4

REPORT INFORMATION
  Report Type: Spontaneous
  Country: US (occurrence: US)
  Receive Date: 20181205
  Receipt Date: 20181205
  Transmission Date: 20190205
  Serious: No
  Sender: FDA-Public Use
  Company Number: US-BAUSCH-BL-2017-034825

PATIENT
  Age: 28 Year
  Sex: Male
  Weight: 79.45 kg

DRUGS (2)
  1. APRISO [Suspect]
     Active Substance: MESALAMINE
     Route: 048
     Dates: start: 201711
  2. APRISO [Suspect]
     Active Substance: MESALAMINE
     Indication: COLITIS ULCERATIVE
     Dosage: APPROXIMATELY 1.5 YEARS
     Route: 048
     Dates: start: 2014

REACTIONS (5)
  - Hallucination, auditory [Recovered/Resolved]
  - Hyperacusis [Recovered/Resolved]
  - Migraine [Recovered/Resolved]
  - Irritability [Not Recovered/Not Resolved]
  - Loss of libido [Not Recovered/Not Resolved]

NARRATIVE: CASE EVENT DATE: 2017
